FAERS Safety Report 11855531 (Version 3)
Quarter: 2016Q1

REPORT INFORMATION
  Report Type: Spontaneous
  Country: US (occurrence: US)
  Receive Date: 20151221
  Receipt Date: 20160203
  Transmission Date: 20160526
  Serious: Yes (Hospitalization, Other)
  Sender: FDA-Public Use
  Company Number: US-BEH-2015056822

PATIENT
  Age: 42 Year
  Sex: Female

DRUGS (4)
  1. ALBUMIN 25% [Suspect]
     Active Substance: ALBUMIN (HUMAN)
     Indication: ACUTE KIDNEY INJURY
  2. ALBUMIN 5% [Suspect]
     Active Substance: ALBUMIN (HUMAN)
     Indication: FLUID REPLACEMENT
  3. ALBUMIN 5% [Suspect]
     Active Substance: ALBUMIN (HUMAN)
     Indication: ACUTE KIDNEY INJURY
  4. ALBUMIN 25% [Suspect]
     Active Substance: ALBUMIN (HUMAN)
     Indication: ACUTE KIDNEY INJURY

REACTIONS (7)
  - Pulmonary oedema [Recovered/Resolved]
  - Tachypnoea [Recovered/Resolved]
  - Crepitations [Recovered/Resolved]
  - Blood albumin increased [Recovered/Resolved]
  - Acute respiratory failure [Recovered/Resolved]
  - Cough [Recovered/Resolved]
  - Hyperdynamic left ventricle [Recovered/Resolved]
